FAERS Safety Report 25186607 (Version 3)
Quarter: 2025Q2

REPORT INFORMATION
  Report Type: Spontaneous
  Country: IT (occurrence: IT)
  Receive Date: 20250411
  Receipt Date: 20250517
  Transmission Date: 20250717
  Serious: Yes (Hospitalization, Other)
  Sender: AUROBINDO
  Company Number: IT-GSK-IT2025GSK035130

PATIENT
  Age: 24 Year
  Sex: Male
  Weight: 85 kg

DRUGS (3)
  1. AMOXICILLIN\CLAVULANIC ACID [Suspect]
     Active Substance: AMOXICILLIN\CLAVULANIC ACID
     Indication: Beta haemolytic streptococcal infection
     Route: 048
  2. AMOXICILLIN\CLAVULANIC ACID [Suspect]
     Active Substance: AMOXICILLIN\CLAVULANIC ACID
     Indication: Streptococcal urinary tract infection
  3. AMOXICILLIN\CLAVULANIC ACID [Suspect]
     Active Substance: AMOXICILLIN\CLAVULANIC ACID
     Indication: Urethritis

REACTIONS (6)
  - Parvovirus B19 infection reactivation [Recovered/Resolved]
  - Infectious mononucleosis [Recovered/Resolved]
  - Odynophagia [Recovered/Resolved]
  - Oropharyngeal pain [Recovered/Resolved]
  - Rash maculo-papular [Recovered/Resolved]
  - Influenza like illness [Recovered/Resolved]
